FAERS Safety Report 23101790 (Version 3)
Quarter: 2023Q4

REPORT INFORMATION
  Report Type: Spontaneous
  Country: US (occurrence: US)
  Receive Date: 20231025
  Receipt Date: 20231130
  Transmission Date: 20240110
  Serious: Yes (Other)
  Sender: FDA-Public Use
  Company Number: US-JNJFOC-20231032246

PATIENT
  Age: 74 Year
  Sex: Male

DRUGS (11)
  1. ERLEADA [Interacting]
     Active Substance: APALUTAMIDE
     Indication: Prostate cancer
     Route: 048
     Dates: start: 20231002
  2. ORGOVYX [Interacting]
     Active Substance: RELUGOLIX
     Indication: Prostate cancer
     Route: 048
     Dates: start: 20230524
  3. ORGOVYX [Interacting]
     Active Substance: RELUGOLIX
     Route: 048
     Dates: start: 20230525, end: 20231005
  4. ORGOVYX [Interacting]
     Active Substance: RELUGOLIX
     Route: 065
  5. DAROLUTAMIDE [Suspect]
     Active Substance: DAROLUTAMIDE
     Indication: Product used for unknown indication
     Route: 065
  6. FIRMAGON [Suspect]
     Active Substance: DEGARELIX ACETATE
     Indication: Product used for unknown indication
     Route: 065
  7. CRESTOR [Concomitant]
     Active Substance: ROSUVASTATIN CALCIUM
     Indication: Product used for unknown indication
     Route: 065
  8. COENZYME Q10 [Concomitant]
     Active Substance: DIETARY SUPPLEMENT\UBIDECARENONE
     Indication: Product used for unknown indication
     Route: 065
  9. CYANOCOBALAMIN [Concomitant]
     Active Substance: CYANOCOBALAMIN
     Indication: Product used for unknown indication
     Route: 065
  10. ERGOCALCIFEROL [Concomitant]
     Active Substance: ERGOCALCIFEROL
     Indication: Product used for unknown indication
     Route: 065
  11. POMI T [Concomitant]
     Indication: Product used for unknown indication
     Route: 065

REACTIONS (17)
  - Intestinal resection [Unknown]
  - Intestinal stenosis [Recovered/Resolved]
  - Dizziness [Not Recovered/Not Resolved]
  - Lethargy [Unknown]
  - Memory impairment [Unknown]
  - Blood cholesterol increased [Unknown]
  - Fatigue [Not Recovered/Not Resolved]
  - Hot flush [Unknown]
  - Injection related reaction [Unknown]
  - Nightmare [Unknown]
  - Dyspnoea [Unknown]
  - Abdominal discomfort [Unknown]
  - COVID-19 [Unknown]
  - Nerve compression [Unknown]
  - Pruritus [Unknown]
  - Drug interaction [Unknown]
  - Erythema [Unknown]

NARRATIVE: CASE EVENT DATE: 20230629
